FAERS Safety Report 15670170 (Version 1)
Quarter: 2018Q4

REPORT INFORMATION
  Report Type: Spontaneous
  Country: US (occurrence: US)
  Receive Date: 20181129
  Receipt Date: 20181129
  Transmission Date: 20190205
  Serious: No
  Sender: FDA-Public Use
  Company Number: US-SA-2018SA323969

PATIENT
  Age: 62 Year
  Sex: Female

DRUGS (4)
  1. ARAVA [Suspect]
     Active Substance: LEFLUNOMIDE
     Indication: RHEUMATOID ARTHRITIS
     Dosage: 1 DF, QD
     Route: 048
     Dates: start: 2000
  2. OXYCODONE [Concomitant]
     Active Substance: OXYCODONE
     Dosage: UNK
     Dates: start: 2016
  3. FENTANYL. [Concomitant]
     Active Substance: FENTANYL
     Dosage: UNK UNK, UNK
     Dates: start: 2014
  4. XELJANZ [Concomitant]
     Active Substance: TOFACITINIB CITRATE
     Dosage: UNK
     Route: 048
     Dates: start: 20181001

REACTIONS (7)
  - Pain [Unknown]
  - Incorrect dose administered [Unknown]
  - Drug ineffective [Unknown]
  - Fluid retention [Unknown]
  - Tendonitis [Unknown]
  - Weight increased [Unknown]
  - Fibromyalgia [Unknown]

NARRATIVE: CASE EVENT DATE: 2018
